FAERS Safety Report 4399004-7 (Version None)
Quarter: 2004Q3

REPORT INFORMATION
  Report Type: 
  Country: None (occurrence: None)
  Receive Date: 20040715
  Receipt Date: 20040706
  Transmission Date: 20050211
  Serious: Yes (Disabling)
  Sender: FDA-Public Use
  Company Number: US-MERCK-0407USA00485

PATIENT
  Age: 70 Year
  Sex: Female

DRUGS (2)
  1. BENACOL [Concomitant]
     Route: 065
  2. ZETIA [Suspect]
     Indication: BLOOD CHOLESTEROL INCREASED
     Route: 048

REACTIONS (8)
  - ABDOMINAL DISCOMFORT [None]
  - ABDOMINAL PAIN LOWER [None]
  - ADVERSE EVENT [None]
  - ANAL DISCOMFORT [None]
  - BACK PAIN [None]
  - BLISTER [None]
  - DIARRHOEA [None]
  - PROCTALGIA [None]
